FAERS Safety Report 4478919-5 (Version None)
Quarter: 2004Q4

REPORT INFORMATION
  Report Type: 
  Country: None (occurrence: None)
  Receive Date: 20041014
  Receipt Date: 20040927
  Transmission Date: 20050328
  Serious: Yes (Other)
  Sender: FDA-Public Use
  Company Number: CH-JNJFOC-20040908789

PATIENT
  Age: 27 Year
  Sex: Female

DRUGS (3)
  1. VERMOX [Suspect]
     Dosage: 100 MG, ORAL
     Route: 048
     Dates: start: 20040604, end: 20040604
  2. VERMOX [Suspect]
     Dosage: 100 MG, ORAL
     Route: 048
     Dates: start: 20040621, end: 20040621
  3. DIFLUCAN [Concomitant]

REACTIONS (3)
  - ALOPECIA TOTALIS [None]
  - ANGIONEUROTIC OEDEMA [None]
  - NAIL DISCOLOURATION [None]
